FAERS Safety Report 20670335 (Version 5)
Quarter: 2022Q2

REPORT INFORMATION
  Report Type: Spontaneous
  Country: FR (occurrence: FR)
  Receive Date: 20220404
  Receipt Date: 20220520
  Transmission Date: 20220720
  Serious: Yes (Hospitalization, Other)
  Sender: FDA-Public Use
  Company Number: None

PATIENT
  Age: 87 Year
  Sex: Male

DRUGS (14)
  1. BISOPROLOL FUMARATE [Suspect]
     Active Substance: BISOPROLOL FUMARATE
     Indication: Hypertension
     Dosage: 5 MILLIGRAM, QD,DAILY(COATED TABLET)
     Route: 048
  2. BISOPROLOL FUMARATE [Suspect]
     Active Substance: BISOPROLOL FUMARATE
     Indication: Axonal neuropathy
  3. FUROSEMIDE [Suspect]
     Active Substance: FUROSEMIDE
     Indication: Hypertension
     Dosage: 80 MILLIGRAM, QD
     Route: 048
  4. FOLIC ACID [Suspect]
     Active Substance: FOLIC ACID
     Indication: Folate deficiency
     Dosage: 2 DOSAGE FORM, QD
     Route: 048
  5. FOLIC ACID [Suspect]
     Active Substance: FOLIC ACID
     Dosage: UNK
  6. FERROUS SULFATE [Suspect]
     Active Substance: FERROUS SULFATE
     Indication: Iron deficiency anaemia
     Dosage: 2 DOSAGE FORM, QD,DAILY
     Route: 048
  7. CORDARONE [Suspect]
     Active Substance: AMIODARONE HYDROCHLORIDE
     Indication: Atrial fibrillation
     Dosage: 5 DOSAGE FORM, QW
     Route: 048
     Dates: start: 20210504, end: 20220217
  8. ELIQUIS [Suspect]
     Active Substance: APIXABAN
     Indication: Atrial fibrillation
     Dosage: 5 MILLIGRAM, QD
     Route: 048
  9. ELIQUIS [Suspect]
     Active Substance: APIXABAN
     Indication: Cerebrovascular accident prophylaxis
  10. COMIRNATY [Suspect]
     Active Substance: TOZINAMERAN
     Indication: COVID-19 immunisation
     Dosage: 3 DOSAGE FORM, TOTAL(30 MICROGRAMS/DOSE)
     Route: 030
     Dates: start: 20210421, end: 20211202
  11. COMIRNATY [Suspect]
     Active Substance: TOZINAMERAN
     Dosage: UNK, TOTAL (DOSE 1, SINGLE)
     Route: 030
     Dates: start: 20210421, end: 20210421
  12. COMIRNATY [Suspect]
     Active Substance: TOZINAMERAN
     Dosage: UNK, TOTAL (DOSE 2, SINGLE)
     Route: 030
     Dates: start: 2021, end: 2021
  13. COMIRNATY [Suspect]
     Active Substance: TOZINAMERAN
     Dosage: UNK, TOTAL (DOSE 3 (BOOSTER), SINGLE)
     Route: 030
     Dates: start: 20211202, end: 20211202
  14. CAPECITABINE [Concomitant]
     Active Substance: CAPECITABINE
     Indication: Product used for unknown indication
     Dosage: 4000 MILLIGRAM, BIWEEKLY
     Route: 048
     Dates: start: 20210601, end: 20210628

REACTIONS (5)
  - Axonal neuropathy [Not Recovered/Not Resolved]
  - Product use issue [Unknown]
  - Product use in unapproved indication [Unknown]
  - Off label use [Unknown]
  - Overdose [Unknown]

NARRATIVE: CASE EVENT DATE: 20220215
